FAERS Safety Report 21407935 (Version 1)
Quarter: 2022Q4

REPORT INFORMATION
  Report Type: Report from Study
  Country: US (occurrence: US)
  Receive Date: 20221004
  Receipt Date: 20221004
  Transmission Date: 20230113
  Serious: No
  Sender: FDA-Public Use
  Company Number: US-ABBVIE-22K-163-4511731-00

PATIENT
  Age: 62 Year
  Sex: Female
  Weight: 150.59 kg

DRUGS (15)
  1. HUMIRA [Suspect]
     Active Substance: ADALIMUMAB
     Indication: Rheumatoid arthritis
     Route: 058
     Dates: start: 20210527
  2. HUMIRA [Suspect]
     Active Substance: ADALIMUMAB
     Indication: Sarcoidosis
  3. PFIZER-BIONTECH COVID-19 VACCINE [Concomitant]
     Active Substance: TOZINAMERAN
     Indication: COVID-19 immunisation
     Dosage: THIRD DOSE?1 IN ONCE
     Route: 030
     Dates: start: 20210420, end: 20210420
  4. PFIZER-BIONTECH COVID-19 VACCINE [Concomitant]
     Active Substance: TOZINAMERAN
     Indication: COVID-19 immunisation
     Dosage: SECOND DOSE?1 IN ONCE
     Route: 030
     Dates: start: 20210312, end: 20210312
  5. PFIZER-BIONTECH COVID-19 VACCINE [Concomitant]
     Active Substance: TOZINAMERAN
     Indication: COVID-19 immunisation
     Dosage: FOURTH DOSE?1 IN ONCE
     Route: 030
     Dates: start: 20220418, end: 20220418
  6. PFIZER-BIONTECH COVID-19 VACCINE [Concomitant]
     Active Substance: TOZINAMERAN
     Indication: COVID-19 immunisation
     Dosage: FIFTH DOSE?1 IN ONCE
     Route: 030
     Dates: start: 20220924, end: 20220924
  7. PFIZER-BIONTECH COVID-19 VACCINE [Concomitant]
     Active Substance: TOZINAMERAN
     Indication: COVID-19 immunisation
     Dosage: FIRST DOSE?1 IN 1 ONCE
     Route: 030
     Dates: start: 20210219, end: 20210219
  8. TOPIRAMATE [Concomitant]
     Active Substance: TOPIRAMATE
     Indication: Arthritis
  9. ETODOLAC [Concomitant]
     Active Substance: ETODOLAC
     Indication: Arthritis
  10. Benzothiazepine [Concomitant]
     Indication: Product used for unknown indication
  11. HYDROXYCHLOROQUINE [Concomitant]
     Active Substance: HYDROXYCHLOROQUINE
     Indication: Arthritis
  12. TRAZODONE [Concomitant]
     Active Substance: TRAZODONE HYDROCHLORIDE
     Indication: Sleep disorder
  13. BREZTRI [Concomitant]
     Active Substance: BUDESONIDE\FORMOTEROL\GLYCOPYRROLATE
     Indication: Product used for unknown indication
  14. PROAIR HFA [Concomitant]
     Active Substance: ALBUTEROL SULFATE
     Indication: Product used for unknown indication
  15. LEVOTHYROXINE [Concomitant]
     Active Substance: LEVOTHYROXINE
     Indication: Product used for unknown indication

REACTIONS (9)
  - Off label use [Unknown]
  - Urticaria [Not Recovered/Not Resolved]
  - Peripheral swelling [Not Recovered/Not Resolved]
  - Medication error [Not Recovered/Not Resolved]
  - Discomfort [Unknown]
  - Injection site pruritus [Recovered/Resolved]
  - Urticaria [Recovered/Resolved]
  - Peripheral venous disease [Not Recovered/Not Resolved]
  - Injection site discharge [Recovered/Resolved]

NARRATIVE: CASE EVENT DATE: 20220401
